FAERS Safety Report 19236897 (Version 2)
Quarter: 2021Q2

REPORT INFORMATION
  Report Type: Report from Study
  Country: US (occurrence: US)
  Receive Date: 20210510
  Receipt Date: 20210629
  Transmission Date: 20210717
  Serious: Yes (Life-Threatening, Hospitalization, Disabling)
  Sender: FDA-Public Use
  Company Number: US-GLAXOSMITHKLINE-US2018GSK218080

PATIENT
  Age: 62 Year
  Sex: Female
  Weight: 85.2 kg

DRUGS (17)
  1. NITROGLYCERIN. [Concomitant]
     Active Substance: NITROGLYCERIN
     Dosage: UNK
     Route: 060
     Dates: start: 2010
  2. WARFARIN [Concomitant]
     Active Substance: WARFARIN
     Dosage: 10 MG, M W F
     Route: 048
     Dates: start: 20180911
  3. FUROSEMIDE. [Suspect]
     Active Substance: FUROSEMIDE
     Indication: HYPERTENSION
     Dosage: 40 MG
     Route: 048
     Dates: start: 20150319, end: 20181116
  4. ALBUTEROL SULFATE. [Concomitant]
     Active Substance: ALBUTEROL SULFATE
     Dosage: UNK
     Route: 055
     Dates: start: 2010
  5. WARFARIN [Concomitant]
     Active Substance: WARFARIN
     Dosage: 7.5 MG, T TH SA
     Route: 048
     Dates: start: 20180911
  6. DAPRODUSTAT [Suspect]
     Active Substance: DAPRODUSTAT
     Indication: NEPHROGENIC ANAEMIA
     Dosage: UNK
     Dates: start: 20171201, end: 20180303
  7. SUBLIMAZE [Concomitant]
     Active Substance: FENTANYL CITRATE
     Dosage: UNK
     Route: 030
     Dates: start: 20181104, end: 20181104
  8. LISINOPRIL. [Suspect]
     Active Substance: LISINOPRIL
     Indication: HYPERTENSION
     Dosage: 20 MG
     Route: 048
     Dates: start: 201804, end: 20181116
  9. SUPPLEMENTAL OXYGEN [Concomitant]
     Active Substance: OXYGEN
     Dosage: UNK
     Route: 045
     Dates: start: 20100222
  10. TYLENOL EX (ACETAMINOPHEN) [Concomitant]
     Dosage: UNK
     Route: 048
     Dates: start: 2017
  11. CETIRIZINE [Concomitant]
     Active Substance: CETIRIZINE HYDROCHLORIDE
     Dosage: UNK
     Route: 048
     Dates: start: 1982
  12. LANSOPRAZOLE. [Concomitant]
     Active Substance: LANSOPRAZOLE
     Dosage: UNK
     Route: 048
     Dates: start: 20160503
  13. PULMICORT FLEXHALER [Concomitant]
     Active Substance: BUDESONIDE
     Dosage: UNK
     Route: 055
     Dates: start: 20180125, end: 201811
  14. CARVEDILOL. [Suspect]
     Active Substance: CARVEDILOL
     Indication: HYPERTENSION
     Dosage: 3.125 MG
     Route: 048
     Dates: start: 20181008, end: 20181120
  15. CICLESONIDE [Concomitant]
     Active Substance: CICLESONIDE
     Dosage: UNK
     Route: 055
     Dates: start: 2010
  16. MONTELUKAST [Concomitant]
     Active Substance: MONTELUKAST SODIUM
     Dosage: UNK
     Route: 048
     Dates: start: 2010
  17. ATORVASTATIN [Concomitant]
     Active Substance: ATORVASTATIN
     Dosage: UNK
     Route: 048
     Dates: start: 20171221

REACTIONS (4)
  - Vascular pseudoaneurysm [Recovered/Resolved]
  - Ligament sprain [Recovered/Resolved]
  - Hypotension [Recovered/Resolved]
  - Peripheral artery haematoma [Recovered/Resolved]

NARRATIVE: CASE EVENT DATE: 20181104
